FAERS Safety Report 7878296-3 (Version None)
Quarter: 2011Q4

REPORT INFORMATION
  Report Type: 
  Country: None (occurrence: None)
  Receive Date: 20111031
  Receipt Date: 20110929
  Transmission Date: 20120403
  Serious: Yes (Hospitalization)
  Sender: FDA-Public Use
  Company Number: 2011SP046387

PATIENT
  Age: 64 Year
  Sex: Male

DRUGS (2)
  1. BENTELAN (BETAMETHASONE SODIUM PHOSPHATE [Concomitant]
  2. CEDAX [Suspect]
     Indication: BRONCHIAL DISORDER
     Dosage: 400 MG, QD
     Dates: start: 20110618, end: 20110623

REACTIONS (2)
  - REFUSAL OF TREATMENT BY PATIENT [None]
  - ERYTHEMA [None]
